FAERS Safety Report 4506452-0 (Version None)
Quarter: 2004Q4

REPORT INFORMATION
  Report Type: 
  Country: None (occurrence: None)
  Receive Date: 20041122
  Receipt Date: 20041109
  Transmission Date: 20050328
  Serious: Yes (Hospitalization)
  Sender: FDA-Public Use
  Company Number: JP-JNJFOC-20041008014

PATIENT
  Sex: Female

DRUGS (10)
  1. REMICADE [Suspect]
     Indication: RHEUMATOID ARTHRITIS
     Route: 042
  2. RHEUMATREX [Concomitant]
     Indication: RHEUMATOID ARTHRITIS
     Route: 049
  3. PREDONINE [Concomitant]
     Indication: RHEUMATOID ARTHRITIS
     Route: 049
  4. MOBIC [Concomitant]
     Indication: RHEUMATOID ARTHRITIS
     Route: 049
  5. ISONIAZID [Concomitant]
     Route: 049
  6. GASTER [Concomitant]
     Route: 049
  7. POLARAMINE [Concomitant]
     Route: 049
  8. ESTRIOL [Concomitant]
     Route: 049
  9. NIPOLAZIN [Concomitant]
     Indication: PREMEDICATION
  10. LOXONIN [Concomitant]
     Indication: PREMEDICATION

REACTIONS (4)
  - BLOOD PRESSURE INCREASED [None]
  - HEADACHE [None]
  - NAUSEA [None]
  - VOMITING [None]
